FAERS Safety Report 18502755 (Version 1)
Quarter: 2020Q4

REPORT INFORMATION
  Report Type: Spontaneous
  Country: US (occurrence: US)
  Receive Date: 20201113
  Receipt Date: 20201113
  Transmission Date: 20210114
  Serious: Yes (Death, Other)
  Sender: FDA-Public Use
  Company Number: US-PURDUE-USA-2020-0173536

PATIENT
  Sex: Female

DRUGS (3)
  1. OXYCONTIN [Suspect]
     Active Substance: OXYCODONE HYDROCHLORIDE
     Indication: PRODUCT USED FOR UNKNOWN INDICATION
     Dosage: UNK
     Route: 048
  2. FENTANYL. [Suspect]
     Active Substance: FENTANYL
     Indication: DRUG ABUSE
     Dosage: UNK
     Route: 065
  3. HEROIN [Suspect]
     Active Substance: DIAMORPHINE
     Indication: DRUG ABUSE
     Dosage: UNK
     Route: 065

REACTIONS (4)
  - Road traffic accident [None]
  - Dependence [Unknown]
  - Drug abuse [Unknown]
  - Exposure during pregnancy [Unknown]
